FAERS Safety Report 7141623-9 (Version None)
Quarter: 2010Q4

REPORT INFORMATION
  Report Type: 
  Country: None (occurrence: None)
  Receive Date: 20101207
  Receipt Date: 20101125
  Transmission Date: 20110411
  Serious: Yes (Disabling, Other)
  Sender: FDA-Public Use
  Company Number: FR-ALEXION-A201001531

PATIENT

DRUGS (4)
  1. SOLIRIS [Suspect]
     Indication: PAROXYSMAL NOCTURNAL HAEMOGLOBINURIA
     Dosage: 600 MG, QW
     Route: 042
     Dates: start: 20071113, end: 20071204
  2. SOLIRIS [Suspect]
     Dosage: 900 MG, Q2W
     Route: 042
     Dates: start: 20071211
  3. PREVISCAN                          /00261401/ [Concomitant]
  4. TOPALGIC                           /00599202/ [Concomitant]

REACTIONS (2)
  - BRONCHOPNEUMONIA [None]
  - OSTEONECROSIS [None]
